FAERS Safety Report 5919801-3 (Version None)
Quarter: 2008Q4

REPORT INFORMATION
  Report Type: 
  Country: None (occurrence: None)
  Receive Date: 20081015
  Receipt Date: 20081006
  Transmission Date: 20090506
  Serious: Yes (Hospitalization, Other)
  Sender: FDA-Public Use
  Company Number: CH-PFIZER INC-2008073004

PATIENT
  Sex: Female

DRUGS (3)
  1. ZYVOXID [Suspect]
     Indication: STAPHYLOCOCCAL INFECTION
     Dates: start: 20080826
  2. RIFAMPICIN [Suspect]
     Indication: STAPHYLOCOCCAL INFECTION
     Dates: start: 20080826
  3. GYNOFLOR [Concomitant]

REACTIONS (6)
  - FLATULENCE [None]
  - HALLUCINATION [None]
  - INSOMNIA [None]
  - NAUSEA [None]
  - RASH [None]
  - VISUAL IMPAIRMENT [None]
